FAERS Safety Report 8857199 (Version 1)
Quarter: 2012Q4

REPORT INFORMATION
  Report Type: 
  Country: DE (occurrence: DE)
  Receive Date: 20121024
  Receipt Date: 20121024
  Transmission Date: 20130627
  Serious: Yes (Death, Life-Threatening, Hospitalization)
  Sender: FDA-Public Use
  Company Number: DE-ELI_LILLY_AND_COMPANY-DE201210004959

PATIENT
  Sex: Male

DRUGS (8)
  1. FORSTEO [Suspect]
     Indication: OSTEOPOROSIS
     Dosage: UNK, qd
     Route: 058
     Dates: start: 20120316
  2. CORTISON [Concomitant]
     Dosage: UNK
  3. THEOPHYLLIN [Concomitant]
     Dosage: UNK
  4. BERODUAL [Concomitant]
     Dosage: UNK
  5. DIGIMERCK [Concomitant]
     Dosage: UNK
  6. VERA LICH [Concomitant]
     Dosage: UNK
  7. MARCUMAR [Concomitant]
     Dosage: UNK
  8. DEKRISTOL [Concomitant]
     Dosage: UNK

REACTIONS (2)
  - Death [Fatal]
  - Aortic rupture [Unknown]
